FAERS Safety Report 25018023 (Version 1)
Quarter: 2025Q1

REPORT INFORMATION
  Report Type: Spontaneous
  Country: TN (occurrence: TN)
  Receive Date: 20250227
  Receipt Date: 20250227
  Transmission Date: 20250408
  Serious: Yes (Other)
  Sender: EPIC PHARM
  Company Number: TN-EPICPHARMA-TN-2025EPCLIT00194

PATIENT
  Age: 22 Year
  Sex: Female

DRUGS (5)
  1. HALOPERIDOL LACTATE [Suspect]
     Active Substance: HALOPERIDOL LACTATE
     Indication: Schizophrenia
     Route: 065
  2. HALOPERIDOL LACTATE [Suspect]
     Active Substance: HALOPERIDOL LACTATE
     Route: 065
  3. CHLORPROMAZINE [Suspect]
     Active Substance: CHLORPROMAZINE
     Indication: Schizophrenia
     Route: 030
  4. CHLORPROMAZINE [Suspect]
     Active Substance: CHLORPROMAZINE
     Route: 065
  5. DIAZEPAM [Concomitant]
     Active Substance: DIAZEPAM
     Indication: Sedative therapy
     Route: 065

REACTIONS (2)
  - Hepatic cytolysis [Recovered/Resolved]
  - Generalised oedema [Recovered/Resolved]
